FAERS Safety Report 9458413 (Version 4)
Quarter: 2013Q4

REPORT INFORMATION
  Report Type: Report from Study
  Country: US (occurrence: US)
  Receive Date: 20130814
  Receipt Date: 20131025
  Transmission Date: 20140711
  Serious: Yes (Death)
  Sender: FDA-Public Use
  Company Number: US-BAYER-2013-095133

PATIENT
  Age: 65 Year
  Sex: Male

DRUGS (1)
  1. XOFIGO [Suspect]
     Indication: PROSTATE CANCER
     Dosage: DOSE REGIMEN: 96.9, TOTAL DOSE: 1
     Route: 042
     Dates: start: 20130711, end: 20130711

REACTIONS (2)
  - Prostate cancer metastatic [Fatal]
  - Metastases to bone marrow [Fatal]
